FAERS Safety Report 13791680 (Version 1)
Quarter: 2017Q3

REPORT INFORMATION
  Report Type: Spontaneous
  Country: ES (occurrence: ES)
  Receive Date: 20170725
  Receipt Date: 20170725
  Transmission Date: 20171127
  Serious: Yes (Hospitalization)
  Sender: FDA-Public Use
  Company Number: PHHY2017ES105196

PATIENT
  Age: 15 Year
  Sex: Female

DRUGS (7)
  1. SANDIMMUN NEORAL [Suspect]
     Active Substance: CYCLOSPORINE
     Indication: LIVER TRANSPLANT
     Dosage: 0.5 ML, BID
     Route: 048
     Dates: start: 20100406, end: 20170201
  2. URBASON [Concomitant]
     Active Substance: METHYLPREDNISOLONE
     Indication: LIVER TRANSPLANT
     Dosage: 3 MG, QD
     Route: 048
     Dates: start: 20100406
  3. SEPTRIN [Suspect]
     Active Substance: SULFAMETHOXAZOLE\TRIMETHOPRIM
     Indication: PROPHYLAXIS
     Dosage: UNK UNK, BID
     Route: 048
     Dates: start: 20100406
  4. FLEBOGAMMA [Suspect]
     Active Substance: HUMAN IMMUNOGLOBULIN G
     Indication: SECONDARY IMMUNODEFICIENCY
     Dosage: 20 G, UNK
     Route: 065
     Dates: start: 20090301
  5. IMUREL [Suspect]
     Active Substance: AZATHIOPRINE SODIUM
     Indication: LIVER TRANSPLANT
     Dosage: UNK
     Route: 048
     Dates: start: 20100406, end: 20170201
  6. RITUXIMAB. [Concomitant]
     Active Substance: RITUXIMAB
     Indication: SECONDARY IMMUNODEFICIENCY
     Dosage: UNK
     Route: 065
     Dates: start: 2009
  7. SANDIMMUN NEORAL [Suspect]
     Active Substance: CYCLOSPORINE
     Indication: TRANSPLANT REJECTION

REACTIONS (1)
  - Pancytopenia [Recovered/Resolved]

NARRATIVE: CASE EVENT DATE: 20120907
